FAERS Safety Report 19685730 (Version 1)
Quarter: 2021Q3

REPORT INFORMATION
  Report Type: Spontaneous
  Country: FR (occurrence: FR)
  Receive Date: 20210811
  Receipt Date: 20210811
  Transmission Date: 20211014
  Serious: Yes (Hospitalization, Other)
  Sender: FDA-Public Use
  Company Number: FR-INDIVIOR US-INDV-130740-2021

PATIENT

DRUGS (2)
  1. SUBUTEX [Suspect]
     Active Substance: BUPRENORPHINE HYDROCHLORIDE
     Indication: PRODUCT USED FOR UNKNOWN INDICATION
     Dosage: 8 MILLIGRAM, (8MG MORNING AND EVENING ALTERNATING WITH METHADONE)
     Route: 060
     Dates: start: 2021
  2. METHADONE HYDROCHLORIDE. [Suspect]
     Active Substance: METHADONE HYDROCHLORIDE
     Indication: PRODUCT USED FOR UNKNOWN INDICATION
     Dosage: 40 MILLIGRAM, UNK
     Route: 048
     Dates: start: 2021

REACTIONS (5)
  - Myocardial infarction [Recovered/Resolved with Sequelae]
  - Congestive cardiomyopathy [Recovering/Resolving]
  - Acute pulmonary oedema [Recovered/Resolved]
  - Withdrawal syndrome [Recovered/Resolved]
  - Intentional product misuse [Recovered/Resolved]

NARRATIVE: CASE EVENT DATE: 2021
